FAERS Safety Report 5311910-5 (Version None)
Quarter: 2007Q2

REPORT INFORMATION
  Report Type: 
  Country: None (occurrence: None)
  Receive Date: 20070430
  Receipt Date: 20060328
  Transmission Date: 20071010
  Serious: No
  Sender: FDA-Public Use
  Company Number: 2006UW05425

PATIENT
  Age: 48 Year
  Sex: Male
  Weight: 124.7 kg

DRUGS (3)
  1. NEXIUM [Suspect]
     Indication: OESOPHAGEAL ULCER
     Route: 048
  2. ALEVE [Suspect]
     Indication: TENDONITIS
  3. NORVASC [Concomitant]

REACTIONS (4)
  - ABDOMINAL DISTENSION [None]
  - CHEST PAIN [None]
  - SENSATION OF PRESSURE [None]
  - TENDONITIS [None]
